FAERS Safety Report 7956765-5 (Version None)
Quarter: 2011Q4

REPORT INFORMATION
  Report Type: 
  Country: None (occurrence: None)
  Receive Date: 20111205
  Receipt Date: 20111125
  Transmission Date: 20120403
  Serious: Yes (Hospitalization)
  Sender: FDA-Public Use
  Company Number: US-BAYER-2011-091602

PATIENT
  Age: 19 Year
  Sex: Female
  Weight: 88.435 kg

DRUGS (3)
  1. YAZ [Suspect]
     Indication: CONTRACEPTION
     Dosage: UNK
     Route: 048
     Dates: start: 20060101
  2. YASMIN [Suspect]
     Indication: CONTRACEPTION
     Route: 048
  3. IBUPROFEN [Concomitant]

REACTIONS (3)
  - GASTROINTESTINAL DISORDER [None]
  - CHOLECYSTECTOMY [None]
  - CHOLECYSTITIS [None]
